FAERS Safety Report 21371377 (Version 1)
Quarter: 2022Q3

REPORT INFORMATION
  Report Type: Spontaneous
  Country: US (occurrence: None)
  Receive Date: 20220922
  Receipt Date: 20220922
  Transmission Date: 20221027
  Serious: Yes (Hospitalization)
  Sender: FDA-Public Use
  Company Number: None

PATIENT
  Age: 61 Year
  Sex: Male
  Weight: 97 kg

DRUGS (1)
  1. ROMIDEPSIN [Suspect]
     Active Substance: ROMIDEPSIN
     Dosage: FREQUENCY : UNKNOWN;?
     Route: 042
     Dates: start: 20220609, end: 20220804

REACTIONS (1)
  - Syncope [None]

NARRATIVE: CASE EVENT DATE: 20220801
